FAERS Safety Report 5733677-9 (Version None)
Quarter: 2008Q2

REPORT INFORMATION
  Report Type: 
  Country: None (occurrence: None)
  Receive Date: 20080509
  Receipt Date: 20080320
  Transmission Date: 20081010
  Serious: No
  Sender: FDA-Public Use
  Company Number: A0714969A

PATIENT
  Age: 49 Year
  Sex: Male
  Weight: 99.5 kg

DRUGS (1)
  1. ALTABAX [Suspect]
     Indication: SKIN INFECTION
     Dosage: 1APP SINGLE DOSE
     Route: 061
     Dates: start: 20080201, end: 20080201

REACTIONS (2)
  - APPLICATION SITE ERYTHEMA [None]
  - SKIN BURNING SENSATION [None]
